FAERS Safety Report 24860507 (Version 1)
Quarter: 2025Q1

REPORT INFORMATION
  Report Type: Spontaneous
  Country: US (occurrence: US)
  Receive Date: 20250120
  Receipt Date: 20250120
  Transmission Date: 20250408
  Serious: No
  Sender: ROCHE
  Company Number: US-CHEPLA-2025000526

PATIENT
  Age: 77 Year
  Sex: Male

DRUGS (2)
  1. CAPECITABINE [Suspect]
     Active Substance: CAPECITABINE
     Indication: Macroprolactinaemia
     Route: 065
     Dates: start: 202301
  2. AVASTIN [Suspect]
     Active Substance: BEVACIZUMAB
     Indication: Prolactin-producing pituitary tumour
     Route: 065

REACTIONS (2)
  - Off label use [Unknown]
  - Disease progression [Unknown]
